FAERS Safety Report 9440913 (Version 3)
Quarter: 2013Q3

REPORT INFORMATION
  Report Type: Spontaneous
  Country: US (occurrence: US)
  Receive Date: 20130805
  Receipt Date: 20130813
  Transmission Date: 20140515
  Serious: Yes (Hospitalization)
  Sender: FDA-Public Use
  Company Number: US-BAYER-2013-091769

PATIENT
  Age: 76 Year
  Sex: Female
  Weight: 91 kg

DRUGS (1)
  1. ALEVE CAPLET [Suspect]
     Indication: ARTHRALGIA
     Dosage: 2 DF, ONCE
     Route: 048

REACTIONS (1)
  - Confusional state [Recovered/Resolved]
